FAERS Safety Report 23247596 (Version 1)
Quarter: 2023Q4

REPORT INFORMATION
  Report Type: Spontaneous
  Country: FR (occurrence: None)
  Receive Date: 20231130
  Receipt Date: 20231130
  Transmission Date: 20240110
  Serious: Yes (Hospitalization)
  Sender: FDA-Public Use
  Company Number: 2023A265281

PATIENT
  Age: 29 Year
  Sex: Female

DRUGS (6)
  1. QUETIAPINE [Suspect]
     Active Substance: QUETIAPINE
     Indication: Poisoning deliberate
     Dosage: MULTIPLE LP 50 BLISTERS UNKNOWN
     Route: 048
     Dates: start: 20231103
  2. ALPRAZOLAM [Suspect]
     Active Substance: ALPRAZOLAM
     Indication: Poisoning deliberate
     Dosage: UNKNOWN
     Route: 048
     Dates: start: 20231103
  3. TERALITHE [Suspect]
     Active Substance: LITHIUM CARBONATE
     Indication: Poisoning deliberate
     Dosage: MULTIPLE LP 50 BLISTERS UNKNOWN
     Route: 048
     Dates: start: 20231103
  4. PHLOROGLUCINOL [Suspect]
     Active Substance: PHLOROGLUCINOL
     Indication: Poisoning deliberate
     Dosage: UNKNOWN
     Route: 048
     Dates: start: 20231103
  5. RACECADOTRIL [Suspect]
     Active Substance: RACECADOTRIL
     Indication: Poisoning deliberate
     Dosage: UNKNOWN
     Route: 048
     Dates: start: 20231103
  6. PAROXETINE HYDROCHLORIDE [Suspect]
     Active Substance: PAROXETINE HYDROCHLORIDE\PAROXETINE HYDROCHLORIDE ANHYDROUS
     Indication: Poisoning deliberate
     Dosage: MULTIPLE 20MG BLISTERS UNKNOWN
     Route: 048
     Dates: start: 20231103

REACTIONS (2)
  - Poisoning deliberate [Recovered/Resolved]
  - Altered state of consciousness [Recovered/Resolved]

NARRATIVE: CASE EVENT DATE: 20231103
